FAERS Safety Report 25493796 (Version 1)
Quarter: 2025Q2

REPORT INFORMATION
  Report Type: Spontaneous
  Country: US (occurrence: None)
  Receive Date: 20250627
  Receipt Date: 20250627
  Transmission Date: 20250716
  Serious: Yes (unspecified)
  Sender: FDA-CTU
  Company Number: None

PATIENT
  Age: 62 Year
  Sex: Female

DRUGS (1)
  1. ZICAM COLD REMEDY [Suspect]
     Active Substance: HOMEOPATHICS\ZINC ACETATE\ZINC GLUCONATE
     Indication: Prophylaxis
     Dosage: FREQUENCY : TWICE A DAY;?
     Route: 061
     Dates: start: 20250120, end: 20250404

REACTIONS (2)
  - Cluster headache [None]
  - Sinus disorder [None]

NARRATIVE: CASE EVENT DATE: 20250401
